FAERS Safety Report 17224410 (Version 1)
Quarter: 2020Q1

REPORT INFORMATION
  Report Type: Report from Study
  Country: US (occurrence: US)
  Receive Date: 20200102
  Receipt Date: 20200102
  Transmission Date: 20200409
  Serious: Yes (Death)
  Sender: FDA-Public Use
  Company Number: US-ASTRAZENECA-2020SE00245

PATIENT
  Age: 58 Year
  Sex: Male

DRUGS (22)
  1. CALQUENCE [Suspect]
     Active Substance: ACALABRUTINIB
     Indication: MANTLE CELL LYMPHOMA
     Route: 048
     Dates: start: 20191207
  2. ASPIRIN. [Concomitant]
     Active Substance: ASPIRIN
  3. LORAZEPAM. [Concomitant]
     Active Substance: LORAZEPAM
  4. OMEPRAZOLE. [Concomitant]
     Active Substance: OMEPRAZOLE
  5. VICTOZA [Concomitant]
     Active Substance: LIRAGLUTIDE
  6. FOLIC ACID. [Concomitant]
     Active Substance: FOLIC ACID
  7. PRAMIPEXOLE DIHYDROCHLORI [Concomitant]
  8. MULTIVITAMIN [Concomitant]
     Active Substance: VITAMINS
  9. WHITE PETROLATUM [Concomitant]
     Active Substance: PETROLATUM
  10. LANOLIN. [Concomitant]
     Active Substance: LANOLIN
  11. PREDNISONE. [Concomitant]
     Active Substance: PREDNISONE
  12. GABAPENTIN. [Concomitant]
     Active Substance: GABAPENTIN
  13. MINERAL OIL. [Concomitant]
     Active Substance: MINERAL OIL
  14. PROBIOTIC [Concomitant]
     Active Substance: PROBIOTICS NOS
  15. MAGNESIUM OXIDE. [Concomitant]
     Active Substance: MAGNESIUM OXIDE
  16. THIAMINE. [Concomitant]
     Active Substance: THIAMINE
  17. TRAZODONE HYDROCHLORIDE. [Concomitant]
     Active Substance: TRAZODONE HYDROCHLORIDE
  18. MUPIROCIN. [Concomitant]
     Active Substance: MUPIROCIN
  19. LEVSIN/SL [Concomitant]
  20. LANTUS [Concomitant]
     Active Substance: INSULIN GLARGINE
  21. KENALOG-40 [Concomitant]
     Active Substance: TRIAMCINOLONE ACETONIDE
  22. KLOR-CON [Concomitant]
     Active Substance: POTASSIUM CHLORIDE

REACTIONS (1)
  - Death [Fatal]
